FAERS Safety Report 25225981 (Version 2)
Quarter: 2025Q3

REPORT INFORMATION
  Report Type: Spontaneous
  Country: US (occurrence: US)
  Receive Date: 20250422
  Receipt Date: 20250728
  Transmission Date: 20251021
  Serious: No
  Sender: SANOFI AVENTIS
  Company Number: US-SA-2025SA116110

PATIENT
  Age: 77 Year
  Sex: Female

DRUGS (3)
  1. DUPIXENT [Suspect]
     Active Substance: DUPILUMAB
     Indication: Dermatitis atopic
     Dosage: 300 MG, QOW
     Route: 058
     Dates: start: 20240404
  2. ALBUTEROL [Concomitant]
     Active Substance: ALBUTEROL
  3. DEXAMETHASONE [Concomitant]
     Active Substance: DEXAMETHASONE
     Dosage: UNK, BID

REACTIONS (4)
  - Malaise [Unknown]
  - Asthenia [Unknown]
  - Somnolence [Unknown]
  - Hospice care [Unknown]

NARRATIVE: CASE EVENT DATE: 20250101
